FAERS Safety Report 24693548 (Version 2)
Quarter: 2025Q3

REPORT INFORMATION
  Report Type: Spontaneous
  Country: CN (occurrence: CN)
  Receive Date: 20241204
  Receipt Date: 20250809
  Transmission Date: 20251021
  Serious: Yes (Hospitalization, Other)
  Sender: ALEXION PHARMACEUTICALS
  Company Number: CN-ASTRAZENECA-202411CHN025557CN

PATIENT
  Age: 76 Year
  Sex: Female
  Weight: 53 kg

DRUGS (3)
  1. FASLODEX [Suspect]
     Active Substance: FULVESTRANT
     Indication: Breast cancer female
     Dosage: 500 MILLIGRAM, Q3W
     Dates: start: 20241031, end: 20241031
  2. FASLODEX [Suspect]
     Active Substance: FULVESTRANT
  3. DALPICICLIB ISETHIONATE [Suspect]
     Active Substance: DALPICICLIB ISETHIONATE
     Indication: Breast cancer female
     Dosage: 100 MILLIGRAM, QD
     Dates: start: 20241031, end: 20241120

REACTIONS (1)
  - Myelosuppression [Recovering/Resolving]
